FAERS Safety Report 12245998 (Version 2)
Quarter: 2016Q2

REPORT INFORMATION
  Report Type: Spontaneous
  Country: US (occurrence: US)
  Receive Date: 20160407
  Receipt Date: 20160607
  Transmission Date: 20160815
  Serious: No
  Sender: FDA-Public Use
  Company Number: US-ASTRAZENECA-2016SE34519

PATIENT
  Age: 59 Year
  Sex: Female
  Weight: 44.5 kg

DRUGS (1)
  1. RHINOCORT [Suspect]
     Active Substance: BUDESONIDE
     Dosage: 2 SPRAYS IN ONE NOSTRIL, 1 SPRAY IN THE OTHER
     Route: 048
     Dates: start: 20160328

REACTIONS (4)
  - Circumstance or information capable of leading to medication error [Unknown]
  - Product quality issue [Unknown]
  - Extra dose administered [Unknown]
  - Product packaging issue [Unknown]
